FAERS Safety Report 16622418 (Version 4)
Quarter: 2020Q1

REPORT INFORMATION
  Report Type: Report from Study
  Country: US (occurrence: US)
  Receive Date: 20190723
  Receipt Date: 20200213
  Transmission Date: 20200409
  Serious: Yes (Hospitalization)
  Sender: FDA-Public Use
  Company Number: US-ACTELION-A-NJ2017-152238

PATIENT
  Sex: Female
  Weight: 120.18 kg

DRUGS (7)
  1. UPTRAVI [Suspect]
     Active Substance: SELEXIPAG
     Dosage: 1400 MCG, BID
     Route: 048
  2. REMODULIN [Concomitant]
     Active Substance: TREPROSTINIL
     Dosage: UNK
     Route: 042
     Dates: start: 202002
  3. AMLODIPINE [Concomitant]
     Active Substance: AMLODIPINE BESYLATE
  4. UPTRAVI [Suspect]
     Active Substance: SELEXIPAG
     Indication: PULMONARY ARTERIAL HYPERTENSION
     Dosage: 1600 MCG, BID
     Route: 048
  5. REMODULIN [Concomitant]
     Active Substance: TREPROSTINIL
     Dosage: UNK
     Route: 058
     Dates: start: 202002
  6. ADCIRCA [Concomitant]
     Active Substance: TADALAFIL
  7. SILDENAFIL. [Concomitant]
     Active Substance: SILDENAFIL
     Dosage: UNK
     Dates: start: 202002

REACTIONS (14)
  - Condition aggravated [Unknown]
  - Pulmonary oedema [Unknown]
  - Dyspnoea [Unknown]
  - Therapy change [Unknown]
  - Dyspnoea exertional [Unknown]
  - Headache [Unknown]
  - Adverse reaction [Unknown]
  - Infection [Unknown]
  - Pneumonia [Unknown]
  - Pain [Unknown]
  - Oedema peripheral [Unknown]
  - Malaise [Unknown]
  - Feeling abnormal [Unknown]
  - Drug ineffective [Unknown]
